FAERS Safety Report 4530192-5 (Version None)
Quarter: 2004Q4

REPORT INFORMATION
  Report Type: 
  Country: None (occurrence: None)
  Receive Date: 20041215
  Receipt Date: 20041203
  Transmission Date: 20050328
  Serious: Yes (Hospitalization, Other)
  Sender: FDA-Public Use
  Company Number: HQWYE750003DEC04

PATIENT
  Age: 82 Year
  Sex: Male

DRUGS (13)
  1. CORDARONE [Suspect]
     Dosage: 150 MG, FREQUENCY UNKNOWN; INTRAVENOUS
     Route: 042
     Dates: end: 20040916
  2. AMLODIPINE BESYLATE [Suspect]
     Dosage: 1 DF DAILY, ORAL
     Route: 048
  3. ATARAX [Suspect]
     Dosage: 25 MG, FREQUENCY UNKNOWN; ORAL
     Route: 048
     Dates: end: 20040916
  4. CLONIDINE [Suspect]
     Dosage: 0.15 MG, FREQENCY UNKNOWN; ORAL
     Route: 048
  5. DOXAZOSIN MESYLATE [Suspect]
     Dosage: UNSPECIFIED; ORAL
     Dates: end: 20040916
  6. PRAVASTATIN [Suspect]
     Dosage: UNSPECIFIED; ORAL
     Route: 048
  7. FOZITEC (FOSINOPRIL, ) [Suspect]
     Dosage: 20 MG, FREQUENCY UNKNOWN; ORAL
     Route: 048
  8. HAVLANE (LOPRAZOLAM MESILATE, ) [Suspect]
     Dosage: 1 MG, FREQUENCY UNKNOWN; ORAL
     Route: 048
  9. POTASSIUM CHLORIDE [Suspect]
     Dosage: UNSPECIFIED; ORAL
     Route: 048
  10. PARACETAMOL/TRAMADOL HYDROCHLORIDE (PARACETAMOL/TRAMADOL HYDROCHLORIDE [Suspect]
     Dosage: 25 MG, FREQUENCY UNKNOWN; ORAL
     Route: 048
     Dates: end: 20040916
  11. SER ^SOLVAY^ (BETAHISTINE HYDROCHLORIDE, ) [Suspect]
     Dosage: 8 MG, FREQUENCY UNKNOWN; ORAL
     Route: 048
     Dates: end: 20040916
  12. SINTROM [Suspect]
     Dosage: 4 MG, FREQUENCY UNKOWN; ORAL
  13. VIOXX [Suspect]
     Dosage: UNSPECIFIED; ORAL
     Route: 048
     Dates: end: 20040901

REACTIONS (2)
  - ECZEMA [None]
  - HYPOTHYROIDISM [None]
